FAERS Safety Report 6410582-6 (Version None)
Quarter: 2009Q4

REPORT INFORMATION
  Report Type: 
  Country: None (occurrence: None)
  Receive Date: 20091016
  Receipt Date: 20091005
  Transmission Date: 20100525
  Serious: Yes (Hospitalization)
  Sender: FDA-Public Use
  Company Number: 8053112

PATIENT
  Sex: Male

DRUGS (1)
  1. CIMZIA [Suspect]
     Dates: start: 20090416

REACTIONS (1)
  - HOSPITALISATION [None]
